FAERS Safety Report 18250609 (Version 1)
Quarter: 2020Q3

REPORT INFORMATION
  Report Type: Report from Study
  Country: None (occurrence: US)
  Receive Date: 20200910
  Receipt Date: 20200910
  Transmission Date: 20201103
  Serious: Yes (Death)
  Sender: FDA-Public Use
  Company Number: US-ABBVIE-20K-163-3559384-00

PATIENT
  Sex: Female

DRUGS (1)
  1. HUMIRA [Suspect]
     Active Substance: ADALIMUMAB
     Indication: PSORIASIS
     Route: 058
     Dates: start: 20190401

REACTIONS (3)
  - Gastrointestinal haemorrhage [Fatal]
  - Coagulopathy [Unknown]
  - Liver disorder [Unknown]

NARRATIVE: CASE EVENT DATE: 20200901
